FAERS Safety Report 13037907 (Version 2)
Quarter: 2016Q4

REPORT INFORMATION
  Report Type: Spontaneous
  Country: US (occurrence: US)
  Receive Date: 20161218
  Receipt Date: 20161221
  Transmission Date: 20170207
  Serious: No
  Sender: FDA-Public Use
  Company Number: US-DEXPHARM-20162382

PATIENT
  Age: 32 Year
  Sex: Male

DRUGS (4)
  1. PETROLEUM [Concomitant]
     Active Substance: PETROLATUM
     Indication: PROMOTION OF WOUND HEALING
  2. K-Y JELLY [Suspect]
     Active Substance: CHLORHEXIDINE GLUCONATE
     Indication: PROMOTION OF WOUND HEALING
     Route: 061
  3. BACITRACIN. [Concomitant]
     Active Substance: BACITRACIN
     Indication: ANTIBIOTIC THERAPY
     Route: 061
  4. KELO-COTE [Concomitant]
     Indication: PROMOTION OF WOUND HEALING

REACTIONS (1)
  - Granuloma [Recovered/Resolved]
